FAERS Safety Report 6295020-9 (Version None)
Quarter: 2009Q3

REPORT INFORMATION
  Report Type: 
  Country: None (occurrence: None)
  Receive Date: 20090731
  Receipt Date: 20090731
  Transmission Date: 20100115
  Serious: Yes (Hospitalization)
  Sender: FDA-Public Use
  Company Number: None

PATIENT
  Age: 48 Year
  Sex: Male
  Weight: 99 kg

DRUGS (1)
  1. BENZOCAINE HURRICAINE [Suspect]
     Indication: BRONCHOSCOPY
     Dosage: ^PREP FOR BRONCHOSCOPY^ ONCE INHAL
     Dates: start: 20090730, end: 20090730

REACTIONS (2)
  - DIZZINESS [None]
  - SKIN DISCOLOURATION [None]
